FAERS Safety Report 19451918 (Version 1)
Quarter: 2021Q2

REPORT INFORMATION
  Report Type: Spontaneous
  Country: US (occurrence: US)
  Receive Date: 20210622
  Receipt Date: 20210622
  Transmission Date: 20210717
  Serious: Yes (Other)
  Sender: FDA-Public Use
  Company Number: None

PATIENT
  Age: 40 Year
  Sex: Male
  Weight: 108.86 kg

DRUGS (8)
  1. TRETINOIN. [Concomitant]
     Active Substance: TRETINOIN
  2. CLINDAMYCIN PHOSPHATE. [Concomitant]
     Active Substance: CLINDAMYCIN PHOSPHATE
  3. METHYLPHENIDATE 36MG [Suspect]
     Active Substance: METHYLPHENIDATE
     Indication: ATTENTION DEFICIT HYPERACTIVITY DISORDER
     Route: 048
     Dates: start: 20200504, end: 20201108
  4. FIBER [Concomitant]
     Active Substance: PSYLLIUM HUSK
  5. METHYLPHENIDATE 27MG [Suspect]
     Active Substance: METHYLPHENIDATE
     Indication: ATTENTION DEFICIT HYPERACTIVITY DISORDER
     Dates: start: 20200504, end: 20201108
  6. MULTIVITAMIN [Concomitant]
     Active Substance: VITAMINS
  7. DOXYCYCLINE HYCLATE. [Concomitant]
     Active Substance: DOXYCYCLINE HYCLATE
  8. CONCERTA [Concomitant]
     Active Substance: METHYLPHENIDATE HYDROCHLORIDE

REACTIONS (5)
  - Gastrointestinal obstruction [None]
  - Mood swings [None]
  - Irritable bowel syndrome [None]
  - Gastrointestinal pain [None]
  - Haematochezia [None]

NARRATIVE: CASE EVENT DATE: 20210201
